FAERS Safety Report 25872393 (Version 1)
Quarter: 2025Q4

REPORT INFORMATION
  Report Type: Spontaneous
  Country: CA (occurrence: CA)
  Receive Date: 20251002
  Receipt Date: 20251002
  Transmission Date: 20260118
  Serious: Yes (Hospitalization)
  Sender: CHEPLAPHARM
  Company Number: CA-CHEPLA-2025011376

PATIENT
  Age: 57 Year
  Sex: Female
  Weight: 103 kg

DRUGS (25)
  1. CLONAZEPAM [Suspect]
     Active Substance: CLONAZEPAM
     Indication: Anxiety
  2. MORPHINE [Suspect]
     Active Substance: MORPHINE
  3. AMLODIPINE [Concomitant]
     Active Substance: AMLODIPINE BESYLATE
  4. ASPIRIN [Concomitant]
     Active Substance: ASPIRIN
  5. BISOPROLOL [Concomitant]
     Active Substance: BISOPROLOL
  6. CLOPIDOGREL [Concomitant]
     Active Substance: CLOPIDOGREL BISULFATE
  7. CORTEF [Concomitant]
     Active Substance: HYDROCORTISONE
  8. DEXILANT [Concomitant]
     Active Substance: DEXLANSOPRAZOLE
     Dosage: CAPSULE, DELAYED RELEASE
  9. DULOXETINE HYDROCHLORIDE [Concomitant]
     Active Substance: DULOXETINE HYDROCHLORIDE
     Dosage: CAPSULE, DELAYED RELEASE
     Route: 048
  10. FERROUS SULFATE [Concomitant]
     Active Substance: FERROUS SULFATE
  11. INSULIN LISPRO [Concomitant]
     Active Substance: INSULIN LISPRO
  12. MAGNESIUM [Concomitant]
     Active Substance: MAGNESIUM
  13. METHADONE [Concomitant]
     Active Substance: METHADONE HYDROCHLORIDE
  14. METOCLOPRAMIDE [Concomitant]
     Active Substance: METOCLOPRAMIDE
  15. MIRAPEX [Concomitant]
     Active Substance: PRAMIPEXOLE DIHYDROCHLORIDE
  16. OS CAL [Concomitant]
  17. OXAZEPAM [Concomitant]
     Active Substance: OXAZEPAM
  18. PENTASA [Concomitant]
     Active Substance: MESALAMINE
  19. PERINDOPRIL [Concomitant]
     Active Substance: PERINDOPRIL
  20. PREGABALIN [Concomitant]
     Active Substance: PREGABALIN
  21. ROSUVASTATIN [Concomitant]
     Active Substance: ROSUVASTATIN
  22. SENNOSIDES [Concomitant]
     Active Substance: SENNOSIDES
  23. TRESIBA [Concomitant]
     Active Substance: INSULIN DEGLUDEC
  24. VITAMIN C [Concomitant]
     Active Substance: ASCORBIC ACID
  25. ZYPREXA [Concomitant]
     Active Substance: OLANZAPINE

REACTIONS (5)
  - Loss of consciousness [Recovered/Resolved]
  - Abdominal pain [Recovered/Resolved]
  - Confusional state [Recovered/Resolved]
  - Somnolence [Recovered/Resolved]
  - Toxicity to various agents [Recovered/Resolved]
